FAERS Safety Report 24715252 (Version 1)
Quarter: 2024Q4

REPORT INFORMATION
  Report Type: Report from Study
  Country: US (occurrence: US)
  Receive Date: 20241210
  Receipt Date: 20241210
  Transmission Date: 20250115
  Serious: Yes (Other)
  Sender: AUROBINDO
  Company Number: US-AUROBINDO-AUR-APL-2024-059077

PATIENT
  Age: 60 Year
  Sex: Female

DRUGS (2)
  1. TENOFOVIR DISOPROXIL FUMARATE [Suspect]
     Active Substance: TENOFOVIR DISOPROXIL FUMARATE
     Indication: Antiretroviral therapy
     Dosage: UNK
     Route: 065
  2. DIDANOSINE [Suspect]
     Active Substance: DIDANOSINE
     Indication: Antiretroviral therapy
     Dosage: 100 MILLIGRAM, DAILY (FOR 140.5 MONTHS WITH CUMULATIVE DOSE 1220.55G )
     Route: 065

REACTIONS (3)
  - Retinal toxicity [Unknown]
  - Toxicity to various agents [Unknown]
  - Drug interaction [Unknown]
